FAERS Safety Report 4279500-3 (Version None)
Quarter: 2004Q1

REPORT INFORMATION
  Report Type: 
  Country: None (occurrence: None)
  Receive Date: 20040123
  Receipt Date: 20040112
  Transmission Date: 20041129
  Serious: Yes (Death)
  Sender: FDA-Public Use
  Company Number: TR-JNJFOC-20040102186

PATIENT
  Age: 41 Year
  Sex: Male
  Weight: 85 kg

DRUGS (5)
  1. REMICADE [Suspect]
     Indication: RHEUMATOID ARTHRITIS
     Dosage: 3 MG/KG, INTRAVENOUS
     Route: 042
     Dates: start: 20030714
  2. METHOTREXATE [Concomitant]
  3. SALICYLAZOSULFAPYRIDINE (SULFASALAZINE) [Concomitant]
  4. FLUCORTISONE (ALL OTHER THERAPEUTIC PRODUCTS) [Concomitant]
  5. CELEBREX [Concomitant]

REACTIONS (2)
  - CARDIAC ARREST [None]
  - CHEST PAIN [None]
